FAERS Safety Report 13533600 (Version 2)
Quarter: 2017Q2

REPORT INFORMATION
  Report Type: Spontaneous
  Country: IT (occurrence: IT)
  Receive Date: 20170510
  Receipt Date: 20170516
  Transmission Date: 20170830
  Serious: Yes (Other)
  Sender: FDA-Public Use
  Company Number: IT-PFIZER INC-2017202644

PATIENT
  Age: 68 Year
  Sex: Male

DRUGS (7)
  1. TRENTAL [Concomitant]
     Active Substance: PENTOXIFYLLINE
  2. LODOTRA [Concomitant]
     Active Substance: PREDNISONE
  3. FOLINA /00024201/ [Concomitant]
     Active Substance: FOLIC ACID
  4. TIKLID [Concomitant]
     Active Substance: TICLOPIDINE HYDROCHLORIDE
  5. PANTOPRAZOLE [Concomitant]
     Active Substance: PANTOPRAZOLE
  6. METHOTREXATE SODIUM. [Suspect]
     Active Substance: METHOTREXATE SODIUM
     Dosage: 7.5 MG, WEEKLY
     Route: 030
     Dates: start: 20160704, end: 20170426
  7. SIMPONI [Suspect]
     Active Substance: GOLIMUMAB
     Indication: RHEUMATOID ARTHRITIS
     Dosage: 50 MG, MONTHLY
     Route: 058
     Dates: start: 20160704, end: 20170426

REACTIONS (2)
  - Pulmonary mass [Unknown]
  - Mycobacterial infection [Unknown]

NARRATIVE: CASE EVENT DATE: 20170426
